FAERS Safety Report 7333460-7 (Version None)
Quarter: 2011Q1

REPORT INFORMATION
  Report Type: 
  Country: None (occurrence: None)
  Receive Date: 20110304
  Receipt Date: 20110301
  Transmission Date: 20110831
  Serious: Yes (Life-Threatening, Hospitalization)
  Sender: FDA-Public Use
  Company Number: PHHO2011DK00931

PATIENT
  Sex: Female
  Weight: 96 kg

DRUGS (4)
  1. TASIGNA [Suspect]
     Dosage: 400 MG, UNK
     Route: 048
  2. SERETIDE [Concomitant]
  3. TASIGNA [Suspect]
     Indication: GASTROINTESTINAL STROMAL TUMOUR
     Dosage: 400 MG, UNK
     Route: 048
     Dates: start: 20100322, end: 20110109
  4. VENTOLIN [Concomitant]

REACTIONS (10)
  - PALPITATIONS [None]
  - PYREXIA [None]
  - ATELECTASIS [None]
  - DYSPNOEA [None]
  - GASTROINTESTINAL STROMAL TUMOUR [None]
  - PNEUMONIA [None]
  - DIZZINESS [None]
  - HYPOXIA [None]
  - CONDITION AGGRAVATED [None]
  - HYPERVENTILATION [None]
